FAERS Safety Report 11074727 (Version 1)
Quarter: 2015Q2

REPORT INFORMATION
  Report Type: Spontaneous
  Country: MX (occurrence: MX)
  Receive Date: 20150429
  Receipt Date: 20150429
  Transmission Date: 20150821
  Serious: Yes (Death, Other)
  Sender: FDA-Public Use
  Company Number: MX-BAYER-2015-161924

PATIENT
  Age: 60 Year
  Sex: Male
  Weight: 73 kg

DRUGS (1)
  1. NEXAVAR [Suspect]
     Active Substance: SORAFENIB
     Indication: RENAL CANCER
     Dosage: 2 DF, BID
     Route: 048
     Dates: start: 201410, end: 20150324

REACTIONS (3)
  - Type 2 diabetes mellitus [Fatal]
  - Metabolic acidosis [Fatal]
  - Metastases to kidney [Fatal]
